FAERS Safety Report 20380111 (Version 2)
Quarter: 2022Q1

REPORT INFORMATION
  Report Type: Report from Study
  Country: IL (occurrence: IL)
  Receive Date: 20220126
  Receipt Date: 20220316
  Transmission Date: 20220423
  Serious: No
  Sender: FDA-Public Use
  Company Number: IL-ABBVIE-22K-082-4249821-00

PATIENT
  Age: 75 Year
  Sex: Male
  Weight: 83 kg

DRUGS (50)
  1. VENCLEXTA [Suspect]
     Active Substance: VENETOCLAX
     Indication: Chronic lymphocytic leukaemia
     Route: 048
     Dates: start: 20210830, end: 20210911
  2. OBINUTUZUMAB [Suspect]
     Active Substance: OBINUTUZUMAB
     Indication: Chronic lymphocytic leukaemia
     Route: 065
     Dates: start: 20210630, end: 20210701
  3. OBINUTUZUMAB [Suspect]
     Active Substance: OBINUTUZUMAB
     Route: 065
     Dates: start: 20210720, end: 20210720
  4. OBINUTUZUMAB [Suspect]
     Active Substance: OBINUTUZUMAB
     Route: 065
     Dates: start: 20210727, end: 20210727
  5. OBINUTUZUMAB [Suspect]
     Active Substance: OBINUTUZUMAB
     Route: 065
     Dates: start: 20210926, end: 20210926
  6. OBINUTUZUMAB [Suspect]
     Active Substance: OBINUTUZUMAB
     Route: 065
     Dates: start: 20210929, end: 20210929
  7. OBINUTUZUMAB [Suspect]
     Active Substance: OBINUTUZUMAB
     Route: 065
     Dates: start: 20211031, end: 20211031
  8. OBINUTUZUMAB [Suspect]
     Active Substance: OBINUTUZUMAB
     Route: 065
     Dates: start: 20211128, end: 20211128
  9. IBRUTINIB [Suspect]
     Active Substance: IBRUTINIB
     Indication: Chronic lymphocytic leukaemia
     Route: 048
     Dates: start: 20210720
  10. AVODART [Concomitant]
     Active Substance: DUTASTERIDE
     Indication: Hormone therapy
     Dates: start: 20210728
  11. AVODART [Concomitant]
     Active Substance: DUTASTERIDE
     Indication: Prostatomegaly
  12. BISOPROLOL FUMARATE [Concomitant]
     Active Substance: BISOPROLOL FUMARATE
     Indication: Hypertension
     Dates: start: 20210422
  13. ESTO [Concomitant]
     Indication: Serum serotonin increased
     Dates: start: 20210422
  14. EZETIMIBE [Concomitant]
     Active Substance: EZETIMIBE
     Indication: Blood cholesterol increased
     Dates: start: 20210422
  15. FOLIC ACID [Concomitant]
     Active Substance: FOLIC ACID
     Indication: Vitamin supplementation
     Dates: start: 20210620
  16. METFORMIN HYDROCHLORIDE [Concomitant]
     Active Substance: METFORMIN HYDROCHLORIDE
     Indication: Type 2 diabetes mellitus
     Dates: start: 20210422
  17. JARDIANCE [Concomitant]
     Active Substance: EMPAGLIFLOZIN
     Indication: Type 2 diabetes mellitus
     Dates: start: 20210422
  18. ATORVASTATIN CALCIUM [Concomitant]
     Active Substance: ATORVASTATIN CALCIUM
     Indication: Lipids increased
     Dates: start: 20210422
  19. LOSEC [Concomitant]
     Active Substance: OMEPRAZOLE
     Indication: Gastrooesophageal reflux disease
     Dates: start: 20210422
  20. PLAVIX [Concomitant]
     Active Substance: CLOPIDOGREL BISULFATE
     Indication: Cerebrovascular accident prophylaxis
     Dates: start: 20210728
  21. PLAVIX [Concomitant]
     Active Substance: CLOPIDOGREL BISULFATE
     Indication: Cardiovascular event prophylaxis
  22. VFEND [Concomitant]
     Active Substance: VORICONAZOLE
     Indication: Antifungal treatment
     Dates: start: 20210728
  23. AMBIEN [Concomitant]
     Active Substance: ZOLPIDEM TARTRATE
     Indication: Antifungal treatment
     Dates: start: 20210422
  24. ALLOPURINOL [Concomitant]
     Active Substance: ALLOPURINOL
     Indication: Prophylaxis
     Dates: start: 20210630, end: 20210630
  25. ALLOPURINOL [Concomitant]
     Active Substance: ALLOPURINOL
     Dates: start: 20210701, end: 20210701
  26. ALLOPURINOL [Concomitant]
     Active Substance: ALLOPURINOL
     Dates: start: 20210720, end: 20210720
  27. ALLOPURINOL [Concomitant]
     Active Substance: ALLOPURINOL
     Dates: start: 20210727, end: 20210727
  28. ALLOPURINOL [Concomitant]
     Active Substance: ALLOPURINOL
     Dates: start: 20211031, end: 20211031
  29. METHYLPREDNISOLONE [Concomitant]
     Active Substance: METHYLPREDNISOLONE
     Indication: Antiallergic therapy
     Dates: start: 20210630, end: 20210630
  30. METHYLPREDNISOLONE [Concomitant]
     Active Substance: METHYLPREDNISOLONE
     Dates: start: 20210701, end: 20210701
  31. METHYLPREDNISOLONE [Concomitant]
     Active Substance: METHYLPREDNISOLONE
     Dates: start: 20210720, end: 20210720
  32. METHYLPREDNISOLONE [Concomitant]
     Active Substance: METHYLPREDNISOLONE
     Dates: start: 20210727, end: 20210727
  33. ACETAMINOPHEN [Concomitant]
     Active Substance: ACETAMINOPHEN
     Indication: Pain management
     Dates: start: 20210630, end: 20210630
  34. ACETAMINOPHEN [Concomitant]
     Active Substance: ACETAMINOPHEN
     Dates: start: 20210701, end: 20210701
  35. ACETAMINOPHEN [Concomitant]
     Active Substance: ACETAMINOPHEN
     Dates: start: 20210720, end: 20210720
  36. ACETAMINOPHEN [Concomitant]
     Active Substance: ACETAMINOPHEN
     Dates: start: 20210727, end: 20210727
  37. ACETAMINOPHEN [Concomitant]
     Active Substance: ACETAMINOPHEN
     Dates: start: 20210929, end: 20210929
  38. PROMETHAZINE [Concomitant]
     Active Substance: PROMETHAZINE HYDROCHLORIDE
     Indication: Antiallergic therapy
     Dates: start: 20210630, end: 20210630
  39. PROMETHAZINE [Concomitant]
     Active Substance: PROMETHAZINE HYDROCHLORIDE
     Dates: start: 20210701, end: 20210701
  40. LORATADINE [Concomitant]
     Active Substance: LORATADINE
     Indication: Antiallergic therapy
     Dates: start: 20210720, end: 20210720
  41. LORATADINE [Concomitant]
     Active Substance: LORATADINE
     Dates: start: 20210727, end: 20210727
  42. LORATADINE [Concomitant]
     Active Substance: LORATADINE
     Dates: start: 20210929, end: 20210929
  43. KAYEXALATE [Concomitant]
     Active Substance: SODIUM POLYSTYRENE SULFONATE
     Indication: Blood potassium increased
     Dates: start: 20210728, end: 20210729
  44. METHYLPREDNISOLONE [Concomitant]
     Active Substance: METHYLPREDNISOLONE
     Indication: Prophylaxis
     Dates: start: 20210929, end: 20210929
  45. METHYLPREDNISOLONE [Concomitant]
     Active Substance: METHYLPREDNISOLONE
     Dates: start: 20211031, end: 20211031
  46. METHYLPREDNISOLONE [Concomitant]
     Active Substance: METHYLPREDNISOLONE
     Dates: start: 20211128, end: 20211128
  47. LORATADINE [Concomitant]
     Active Substance: LORATADINE
     Indication: Prophylaxis
     Dates: start: 20211031, end: 20211031
  48. LORATADINE [Concomitant]
     Active Substance: LORATADINE
     Dates: start: 20211128, end: 20211128
  49. ACETAMINOPHEN [Concomitant]
     Active Substance: ACETAMINOPHEN
     Indication: Pain prophylaxis
     Dates: start: 20211031, end: 20211031
  50. ACETAMINOPHEN [Concomitant]
     Active Substance: ACETAMINOPHEN
     Indication: Pain management
     Dates: start: 20211128, end: 20211128

REACTIONS (1)
  - Prostate ablation [Recovered/Resolved]

NARRATIVE: CASE EVENT DATE: 20211130
